FAERS Safety Report 5424439-0 (Version None)
Quarter: 2007Q3

REPORT INFORMATION
  Report Type: 
  Country: None (occurrence: None)
  Receive Date: 20070822
  Receipt Date: 20070807
  Transmission Date: 20080115
  Serious: Yes (Death)
  Sender: FDA-Public Use
  Company Number: 2007001457

PATIENT
  Age: 48 Year
  Sex: Female

DRUGS (2)
  1. ERLOTINIB (TABLET) (ERLOTINIB HCL) [Suspect]
     Dosage: 150 MG (QD) ORAL
     Route: 048
     Dates: start: 20070613
  2. MUCOSOLVAN (AMBROXOL HYDROCHLORIDE) [Concomitant]

REACTIONS (2)
  - ACUTE RESPIRATORY FAILURE [None]
  - SUDDEN DEATH [None]
